FAERS Safety Report 24915967 (Version 1)
Quarter: 2025Q1

REPORT INFORMATION
  Report Type: Spontaneous
  Country: US (occurrence: US)
  Receive Date: 20250203
  Receipt Date: 20250203
  Transmission Date: 20250408
  Serious: No
  Sender: ACCORD
  Company Number: US-Accord-414407

PATIENT
  Age: 56 Year
  Sex: Female

DRUGS (6)
  1. BUSPIRONE [Suspect]
     Active Substance: BUSPIRONE HYDROCHLORIDE
     Indication: Anxiety
     Route: 048
  2. LUMATEPERONE [Suspect]
     Active Substance: LUMATEPERONE
     Indication: Product used for unknown indication
     Dates: start: 202308, end: 20240214
  3. PAXIL [Suspect]
     Active Substance: PAROXETINE HYDROCHLORIDE
     Indication: Product used for unknown indication
  4. PROPRANOLOL [Suspect]
     Active Substance: PROPRANOLOL HYDROCHLORIDE
     Indication: Product used for unknown indication
  5. VALIUM [Suspect]
     Active Substance: DIAZEPAM
     Indication: Product used for unknown indication
  6. LUMATEPERONE [Suspect]
     Active Substance: LUMATEPERONE
     Indication: Product used for unknown indication
     Dates: start: 20240215

REACTIONS (3)
  - Dysarthria [Recovered/Resolved]
  - Speech disorder developmental [Recovered/Resolved]
  - COVID-19 [Unknown]

NARRATIVE: CASE EVENT DATE: 20231201
